FAERS Safety Report 6298412-7 (Version None)
Quarter: 2009Q3

REPORT INFORMATION
  Report Type: 
  Country: None (occurrence: None)
  Receive Date: 20090805
  Receipt Date: 20090727
  Transmission Date: 20100115
  Serious: Yes (Death, Hospitalization, Other)
  Sender: FDA-Public Use
  Company Number: TW-BAXTER-2009BH011718

PATIENT
  Age: 43 Year
  Sex: Male

DRUGS (5)
  1. DIANEAL [Suspect]
     Indication: PERITONEAL DIALYSIS
     Route: 033
     Dates: start: 20090501, end: 20090618
  2. DIANEAL [Suspect]
     Route: 033
     Dates: start: 20090501, end: 20090618
  3. DIANEAL [Suspect]
     Indication: PERITONEAL DIALYSIS
     Route: 033
     Dates: start: 20090501, end: 20090618
  4. EXTRANEAL [Suspect]
     Indication: PERITONEAL DIALYSIS
     Route: 033
     Dates: start: 20090501, end: 20090618
  5. EXTRANEAL [Suspect]
     Route: 033
     Dates: start: 20090501, end: 20090618

REACTIONS (5)
  - APPENDICITIS PERFORATED [None]
  - CARDIAC DISORDER [None]
  - PERITONITIS BACTERIAL [None]
  - SEPSIS [None]
  - VENTRICULAR TACHYCARDIA [None]
